FAERS Safety Report 7414996-7 (Version None)
Quarter: 2011Q2

REPORT INFORMATION
  Report Type: 
  Country: None (occurrence: None)
  Receive Date: 20110414
  Receipt Date: 20110412
  Transmission Date: 20111010
  Serious: Yes (Other)
  Sender: FDA-Public Use
  Company Number: GR-PFIZER INC-2011074668

PATIENT
  Age: 55 Year
  Sex: Male

DRUGS (1)
  1. SUTENT [Suspect]
     Indication: RENAL CELL CARCINOMA
     Dosage: 50 MG, CYCLIC (4 WEEKS ON-2 WEEKS OFF)
     Route: 048
     Dates: start: 20101005

REACTIONS (5)
  - NECROSIS [None]
  - FATIGUE [None]
  - HYPERTENSION [None]
  - AGEUSIA [None]
  - DECREASED APPETITE [None]
